FAERS Safety Report 5349877-6 (Version None)
Quarter: 2007Q2

REPORT INFORMATION
  Report Type: 
  Country: None (occurrence: None)
  Receive Date: 20070607
  Receipt Date: 20070321
  Transmission Date: 20071010
  Serious: Yes (Other)
  Sender: FDA-Public Use
  Company Number: US-PFIZER INC-2007024847

PATIENT
  Sex: Male
  Weight: 92.1 kg

DRUGS (2)
  1. BEXTRA [Suspect]
     Indication: PAIN
  2. CELEBREX [Concomitant]

REACTIONS (1)
  - STEVENS-JOHNSON SYNDROME [None]
